FAERS Safety Report 21059258 (Version 2)
Quarter: 2022Q3

REPORT INFORMATION
  Report Type: Spontaneous
  Country: US (occurrence: US)
  Receive Date: 20220708
  Receipt Date: 20220708
  Transmission Date: 20221027
  Serious: No
  Sender: FDA-Public Use
  Company Number: US-PFIZER INC-202200929775

PATIENT
  Age: 74 Year
  Sex: Male

DRUGS (1)
  1. ACCUPRIL [Suspect]
     Active Substance: QUINAPRIL HYDROCHLORIDE
     Dosage: 40 MG

REACTIONS (3)
  - Recalled product administered [Unknown]
  - Urticaria [Not Recovered/Not Resolved]
  - Skin disorder [Recovering/Resolving]
